FAERS Safety Report 15499741 (Version 1)
Quarter: 2018Q4

REPORT INFORMATION
  Report Type: Spontaneous
  Country: US (occurrence: US)
  Receive Date: 20181008
  Receipt Date: 20181008
  Transmission Date: 20190205
  Serious: No
  Sender: FDA-Public Use
  Company Number: None

PATIENT

DRUGS (1)
  1. PROPOFOL. [Suspect]
     Active Substance: PROPOFOL

REACTIONS (4)
  - Muscle contracture [None]
  - Tremor [None]
  - Delirium [None]
  - Parkinsonian rest tremor [None]
